FAERS Safety Report 7707602-5 (Version None)
Quarter: 2011Q3

REPORT INFORMATION
  Report Type: 
  Country: None (occurrence: None)
  Receive Date: 20110824
  Receipt Date: 20110819
  Transmission Date: 20111222
  Serious: Yes (Hospitalization, Other)
  Sender: FDA-Public Use
  Company Number: US-ABBOTT-11P-163-0848155-00

PATIENT
  Sex: Female
  Weight: 122.58 kg

DRUGS (6)
  1. LOVAZA [Concomitant]
     Indication: BLOOD CHOLESTEROL INCREASED
  2. TRICOR [Concomitant]
     Indication: BLOOD CHOLESTEROL INCREASED
  3. XOPENEX [Concomitant]
     Indication: ASTHMA
  4. ASMANEX TWISTHALER [Concomitant]
     Indication: ASTHMA
  5. IBUPROFEN [Concomitant]
     Indication: MIGRAINE
  6. HUMIRA [Suspect]
     Indication: RHEUMATOID ARTHRITIS

REACTIONS (6)
  - PAIN IN EXTREMITY [None]
  - UNEVALUABLE EVENT [None]
  - FOOT OPERATION [None]
  - INJECTION SITE PAIN [None]
  - OEDEMA PERIPHERAL [None]
  - CHONDROPATHY [None]
